FAERS Safety Report 16241342 (Version 1)
Quarter: 2019Q2

REPORT INFORMATION
  Report Type: Report from Study
  Country: None (occurrence: US)
  Receive Date: 20190426
  Receipt Date: 20190426
  Transmission Date: 20190711
  Serious: Yes (Death, Hospitalization)
  Sender: FDA-Public Use
  Company Number: US-ABBVIE-19K-163-2632877-00

PATIENT
  Age: 61 Year
  Sex: Male

DRUGS (1)
  1. HUMIRA [Suspect]
     Active Substance: ADALIMUMAB
     Indication: RHEUMATOID ARTHRITIS
     Route: 058
     Dates: start: 20181019

REACTIONS (5)
  - Surgical failure [Unknown]
  - Compartment syndrome [Fatal]
  - Sepsis [Fatal]
  - Furuncle [Recovering/Resolving]
  - Corneal transplant [Unknown]

NARRATIVE: CASE EVENT DATE: 201812
